FAERS Safety Report 7372802-3 (Version None)
Quarter: 2011Q1

REPORT INFORMATION
  Report Type: 
  Country: None (occurrence: None)
  Receive Date: 20110324
  Receipt Date: 20101201
  Transmission Date: 20110831
  Serious: No
  Sender: FDA-Public Use
  Company Number: US-BAUSCH-2010BL006809

PATIENT
  Age: 81 Year
  Sex: Male

DRUGS (12)
  1. BESIVANCE [Suspect]
     Indication: PREOPERATIVE CARE
     Route: 047
     Dates: start: 20101114, end: 20101123
  2. DICLOFENAC SODIUM [Suspect]
     Route: 047
     Dates: start: 20101128
  3. BESIVANCE [Suspect]
     Indication: OFF LABEL USE
     Route: 047
     Dates: start: 20101114, end: 20101123
  4. DICLOFENAC SODIUM [Suspect]
     Route: 047
     Dates: start: 20101128
  5. BESIVANCE [Suspect]
     Indication: POSTOPERATIVE CARE
     Route: 047
     Dates: start: 20101114, end: 20101123
  6. DICLOFENAC SODIUM [Suspect]
     Route: 047
     Dates: start: 20101121, end: 20101127
  7. OMNIPRED [Concomitant]
     Indication: PREOPERATIVE CARE
     Route: 047
     Dates: start: 20101114, end: 20101120
  8. OMNIPRED [Concomitant]
     Route: 047
     Dates: start: 20101128
  9. DICLOFENAC SODIUM [Suspect]
     Indication: POSTOPERATIVE CARE
     Route: 047
     Dates: start: 20101114, end: 20101120
  10. DICLOFENAC SODIUM [Suspect]
     Route: 047
     Dates: start: 20101121, end: 20101127
  11. OMNIPRED [Concomitant]
     Indication: POSTOPERATIVE CARE
     Route: 047
     Dates: start: 20101121, end: 20101127
  12. DICLOFENAC SODIUM [Suspect]
     Indication: PREOPERATIVE CARE
     Route: 047
     Dates: start: 20101114, end: 20101120

REACTIONS (2)
  - KERATOPATHY [None]
  - OCULAR TOXICITY [None]
